FAERS Safety Report 5646119-9 (Version None)
Quarter: 2008Q1

REPORT INFORMATION
  Report Type: 
  Country: None (occurrence: None)
  Receive Date: 20080229
  Receipt Date: 20080219
  Transmission Date: 20080703
  Serious: Yes (Other)
  Sender: FDA-Public Use
  Company Number: GB-PFIZER INC-2008016805

PATIENT
  Age: 54 Year
  Sex: Female

DRUGS (3)
  1. CHANTIX [Suspect]
     Indication: SMOKING CESSATION THERAPY
     Route: 048
     Dates: start: 20080114, end: 20080201
  2. LITHIUM CARBONATE [Concomitant]
     Indication: BIPOLAR DISORDER
     Dosage: DAILY DOSE:800MG
     Route: 048
  3. OLANZAPINE [Concomitant]
     Indication: BIPOLAR DISORDER
     Route: 048

REACTIONS (2)
  - HYPOMANIA [None]
  - INSOMNIA [None]
